FAERS Safety Report 5381562-7 (Version None)
Quarter: 2007Q3

REPORT INFORMATION
  Report Type: 
  Country: None (occurrence: None)
  Receive Date: 20070709
  Receipt Date: 20070629
  Transmission Date: 20080115
  Serious: Yes (Disabling)
  Sender: FDA-Public Use
  Company Number: US-GENENTECH-242567

PATIENT
  Sex: Male
  Weight: 68.027 kg

DRUGS (6)
  1. NUTROPIN AQ [Suspect]
     Indication: GROWTH HORMONE DEFICIENCY
     Dosage: 2.1 MG, QD
     Route: 058
     Dates: start: 20010701, end: 20070501
  2. NUTROPIN AQ [Suspect]
     Dosage: 1.5 MG, QD
     Route: 058
     Dates: start: 20070501
  3. LEVOTHYROXINE SODIUM [Suspect]
     Indication: ACUTE LYMPHOCYTIC LEUKAEMIA
     Dosage: 88 A?G, QD
     Route: 048
     Dates: start: 20010101
  4. ZOLOFT [Concomitant]
     Indication: DRUG USE FOR UNKNOWN INDICATION
     Dosage: 25 MG, QD
  5. CONCERTA [Concomitant]
     Indication: DRUG USE FOR UNKNOWN INDICATION
     Dosage: 36 MG, QD
  6. MINOCYCLINE HCL [Concomitant]
     Indication: DRUG USE FOR UNKNOWN INDICATION
     Dosage: 100 MG, QD

REACTIONS (2)
  - LETHARGY [None]
  - SCOLIOSIS [None]
